FAERS Safety Report 10146208 (Version 1)
Quarter: 2014Q2

REPORT INFORMATION
  Report Type: Spontaneous
  Country: US (occurrence: US)
  Receive Date: 20140501
  Receipt Date: 20140501
  Transmission Date: 20141212
  Serious: No
  Sender: FDA-Public Use
  Company Number: US-BAYER-2014-064059

PATIENT
  Sex: Male

DRUGS (1)
  1. ALEVE TABLET [Suspect]
     Indication: PAIN
     Dosage: 2 DF, UNK
     Route: 048

REACTIONS (1)
  - Drug ineffective [None]
